FAERS Safety Report 12133652 (Version 8)
Quarter: 2023Q1

REPORT INFORMATION
  Report Type: Spontaneous
  Country: GB (occurrence: GB)
  Receive Date: 20160301
  Receipt Date: 20230201
  Transmission Date: 20230418
  Serious: Yes (Congenital Anomaly, Other)
  Sender: FDA-Public Use
  Company Number: None

PATIENT
  Age: 4 Month

DRUGS (10)
  1. RANITIDINE [Suspect]
     Active Substance: RANITIDINE
     Indication: Foetal exposure during pregnancy
     Dosage: MATERNAL DOSE: UNK, (EVERY)
     Route: 064
  2. RANITIDINE [Suspect]
     Active Substance: RANITIDINE
     Dosage: (MATERNAL DOSE: UNK)
     Route: 064
  3. METFORMIN [Suspect]
     Active Substance: METFORMIN HYDROCHLORIDE
     Indication: Foetal exposure during pregnancy
     Dosage: (MATERNAL DOSE: UNK, (EVERY)
     Route: 064
  4. METFORMIN [Suspect]
     Active Substance: METFORMIN HYDROCHLORIDE
     Dosage: (MATERNAL DOSE: UNK)
     Route: 064
  5. PAROXETINE [Suspect]
     Active Substance: PAROXETINE
     Indication: Foetal exposure during pregnancy
     Dosage: (MATERNAL DOSE: 15 MG, EVERY)
     Route: 064
  6. PAROXETINE [Suspect]
     Active Substance: PAROXETINE
     Dosage: (MATERNAL DOSE: UNK)
     Route: 064
  7. DAPAGLIFLOZIN [Suspect]
     Active Substance: DAPAGLIFLOZIN
     Indication: Foetal exposure during pregnancy
     Dosage: (MATERNAL DOSE: 10 MG (EVERY)
     Route: 064
  8. DAPAGLIFLOZIN [Suspect]
     Active Substance: DAPAGLIFLOZIN
     Dosage: (MATERNAL DOSE: UNK)
     Route: 064
  9. DAPAGLIFLOZIN [Suspect]
     Active Substance: DAPAGLIFLOZIN
     Indication: Foetal exposure during pregnancy
     Dosage: (MATERNAL DOSE: 10 MG)
     Route: 064
  10. DAPAGLIFLOZIN [Suspect]
     Active Substance: DAPAGLIFLOZIN
     Dosage: MATERNAL DOSE: UNK
     Route: 064

REACTIONS (2)
  - Congenital hydrocephalus [Unknown]
  - Foetal exposure during pregnancy [Unknown]
